FAERS Safety Report 7542524-4 (Version None)
Quarter: 2011Q2

REPORT INFORMATION
  Report Type: 
  Country: None (occurrence: None)
  Receive Date: 20110613
  Receipt Date: 20110609
  Transmission Date: 20111010
  Serious: Yes (Hospitalization, Other)
  Sender: FDA-Public Use
  Company Number: US-ABBOTT-11P-163-0725628-00

PATIENT
  Sex: Male
  Weight: 90.8 kg

DRUGS (7)
  1. LISINOPRIL [Concomitant]
     Indication: PRODUCT USED FOR UNKNOWN INDICATION
  2. PLAVIX [Concomitant]
     Indication: PRODUCT USED FOR UNKNOWN INDICATION
  3. ASPIRIN [Concomitant]
     Indication: PRODUCT USED FOR UNKNOWN INDICATION
  4. HUMIRA [Suspect]
     Indication: PSORIASIS
     Dates: start: 20100601, end: 20110201
  5. PRISTIQ [Concomitant]
     Indication: PRODUCT USED FOR UNKNOWN INDICATION
  6. CRESTOR [Concomitant]
     Indication: PRODUCT USED FOR UNKNOWN INDICATION
  7. LOPRESSOR [Concomitant]
     Indication: PRODUCT USED FOR UNKNOWN INDICATION

REACTIONS (10)
  - INCOHERENT [None]
  - PANCYTOPENIA [None]
  - NORMOCHROMIC NORMOCYTIC ANAEMIA [None]
  - CEREBRAL ATROPHY [None]
  - MYELODYSPLASTIC SYNDROME [None]
  - DIZZINESS [None]
  - MUSCULAR WEAKNESS [None]
  - BONE MARROW FAILURE [None]
  - THROMBOCYTOPENIA [None]
  - FALL [None]
